FAERS Safety Report 10189468 (Version 2)
Quarter: 2014Q2

REPORT INFORMATION
  Report Type: Spontaneous
  Country: US (occurrence: US)
  Receive Date: 20140522
  Receipt Date: 20140604
  Transmission Date: 20141212
  Serious: Yes (Other)
  Sender: FDA-Public Use
  Company Number: US-PFIZER INC-2014136369

PATIENT
  Age: 39 Year
  Sex: Female
  Weight: 57 kg

DRUGS (4)
  1. LYRICA [Suspect]
     Indication: FIBROMYALGIA
     Dosage: 100 MG, 2X/DAY
  2. VALIUM [Concomitant]
     Dosage: UNK
  3. XANAX [Concomitant]
     Dosage: UNK
  4. TYLENOL WITH CODEINE [Concomitant]
     Dosage: UNK

REACTIONS (2)
  - Intervertebral disc protrusion [Not Recovered/Not Resolved]
  - Neck pain [Not Recovered/Not Resolved]
